FAERS Safety Report 6860830-3 (Version None)
Quarter: 2010Q3

REPORT INFORMATION
  Report Type: 
  Country: None (occurrence: None)
  Receive Date: 20100720
  Receipt Date: 20100715
  Transmission Date: 20110219
  Serious: Yes (Other)
  Sender: FDA-Public Use
  Company Number: CH-MERCK-1007USA01757

PATIENT
  Age: 11 Year
  Sex: Male
  Weight: 35 kg

DRUGS (3)
  1. SINGULAIR [Suspect]
     Indication: ASTHMA
     Route: 048
     Dates: start: 20100528, end: 20100528
  2. ARAVA [Concomitant]
     Route: 065
  3. REMICADE [Concomitant]
     Route: 065

REACTIONS (2)
  - TYPE I HYPERSENSITIVITY [None]
  - URTICARIA [None]
